FAERS Safety Report 10573103 (Version 2)
Quarter: 2014Q4

REPORT INFORMATION
  Report Type: Spontaneous
  Country: US (occurrence: None)
  Receive Date: 20141106
  Receipt Date: 20141126
  Transmission Date: 20150529
  Serious: Yes (Other)
  Sender: FDA-Public Use
  Company Number: 2014-20656

PATIENT
  Age: 65 Year
  Sex: Female
  Weight: 94.8 kg

DRUGS (3)
  1. EYLEA [Suspect]
     Active Substance: AFLIBERCEPT
     Indication: DIABETIC RETINOPATHY
     Route: 031
     Dates: start: 20141028, end: 20141028
  2. LANTUS [Concomitant]
     Active Substance: INSULIN GLARGINE
  3. APIDRA (INSULIN GLARGINE) [Concomitant]

REACTIONS (2)
  - Blood glucose increased [None]
  - Pollakiuria [None]

NARRATIVE: CASE EVENT DATE: 20141028
